FAERS Safety Report 5662698-X (Version None)
Quarter: 2008Q1

REPORT INFORMATION
  Report Type: 
  Country: None (occurrence: None)
  Receive Date: 20080313
  Receipt Date: 20080307
  Transmission Date: 20080703
  Serious: Yes (Life-Threatening, Hospitalization)
  Sender: FDA-Public Use
  Company Number: CH-AVENTIS-200812195GDDC

PATIENT
  Age: 74 Year
  Sex: Male
  Weight: 62 kg

DRUGS (5)
  1. ARAVA [Suspect]
     Indication: POLYARTHRITIS
     Route: 048
     Dates: start: 20060201, end: 20080201
  2. PREDNISOLONE [Concomitant]
     Indication: POLYARTHRITIS
     Route: 048
  3. ENALAPRIL MALEATE [Concomitant]
     Indication: CORONARY ARTERY DISEASE
     Route: 048
  4. PRAVASTATIN [Concomitant]
     Route: 048
  5. ASPIRIN [Concomitant]
     Indication: CORONARY ARTERY DISEASE
     Route: 048

REACTIONS (3)
  - AGRANULOCYTOSIS [None]
  - BONE MARROW FAILURE [None]
  - PANCYTOPENIA [None]
